FAERS Safety Report 15978599 (Version 2)
Quarter: 2019Q1

REPORT INFORMATION
  Report Type: Report from Study
  Country: None (occurrence: AT)
  Receive Date: 20190219
  Receipt Date: 20190318
  Transmission Date: 20190418
  Serious: Yes (Hospitalization)
  Sender: FDA-Public Use
  Company Number: AT-ABBVIE-19S-009-2670120-00

PATIENT
  Sex: Female

DRUGS (2)
  1. DUODOPA [Suspect]
     Active Substance: CARBIDOPA\LEVODOPA
     Dosage: MD: 9ML, CR DAYTIME: 3.8ML/H, ED: 2ML
     Route: 050
  2. DUODOPA [Suspect]
     Active Substance: CARBIDOPA\LEVODOPA
     Indication: PARKINSON^S DISEASE
     Dosage: 16H THERAPY: MD: 9ML, CR DAYTIME: 4ML/H, ED: 2ML
     Route: 050
     Dates: start: 20130225

REACTIONS (5)
  - Stoma site hypergranulation [Recovered/Resolved]
  - Fall [Recovered/Resolved]
  - Decubitus ulcer [Unknown]
  - Hyperkinesia [Recovered/Resolved]
  - Device programming error [Unknown]
